FAERS Safety Report 11163416 (Version 1)
Quarter: 2015Q2

REPORT INFORMATION
  Report Type: Spontaneous
  Country: US (occurrence: US)
  Receive Date: 20150604
  Receipt Date: 20150604
  Transmission Date: 20150821
  Serious: Yes (Hospitalization, Other)
  Sender: FDA-Public Use
  Company Number: US-SA-2014SA131076

PATIENT
  Age: 47 Year
  Sex: Male

DRUGS (4)
  1. HUMALOG [Concomitant]
     Active Substance: INSULIN LISPRO
     Dates: start: 2010
  2. SOLOSTAR [Concomitant]
     Active Substance: DEVICE
     Dates: start: 2010
  3. METFORMIN [Concomitant]
     Active Substance: METFORMIN HYDROCHLORIDE
  4. LANTUS SOLOSTAR [Suspect]
     Active Substance: INSULIN GLARGINE
     Indication: TYPE 2 DIABETES MELLITUS
     Dosage: START DATE: 4 YEARS AGO DOSE:40 UNIT(S)
     Route: 065
     Dates: start: 2010

REACTIONS (9)
  - Hyperhidrosis [Unknown]
  - Visual impairment [Unknown]
  - Diabetes mellitus inadequate control [Unknown]
  - Fatigue [Unknown]
  - Loss of consciousness [Unknown]
  - Hypoaesthesia [Unknown]
  - Blood glucose decreased [Unknown]
  - Dizziness [Unknown]
  - Headache [Unknown]
